FAERS Safety Report 5393495-0 (Version None)
Quarter: 2007Q3

REPORT INFORMATION
  Report Type: 
  Country: None (occurrence: None)
  Receive Date: 20070723
  Receipt Date: 20060713
  Transmission Date: 20080115
  Serious: No
  Sender: FDA-Public Use
  Company Number: A0610787A

PATIENT
  Sex: Female

DRUGS (5)
  1. AVANDIA [Suspect]
     Dosage: 8MG TWICE PER DAY
     Route: 048
  2. LASIX [Concomitant]
     Dosage: 40MG TWICE PER DAY
     Route: 048
  3. METFORMIN HCL [Concomitant]
     Dosage: 500MG TWICE PER DAY
     Route: 048
  4. GLYBURIDE [Concomitant]
     Dosage: 2.5MG TWICE PER DAY
     Route: 048
  5. LANTUS [Concomitant]

REACTIONS (2)
  - OEDEMA [None]
  - OVERDOSE [None]
